FAERS Safety Report 15947885 (Version 1)
Quarter: 2019Q1

REPORT INFORMATION
  Report Type: Spontaneous
  Country: CN (occurrence: CN)
  Receive Date: 20190211
  Receipt Date: 20190211
  Transmission Date: 20190417
  Serious: Yes (Hospitalization)
  Sender: FDA-Public Use
  Company Number: CN-ASTELLAS-2019US004788

PATIENT
  Age: 50 Year
  Sex: Male

DRUGS (7)
  1. PEMETREXED. [Concomitant]
     Active Substance: PEMETREXED
     Indication: LUNG ADENOCARCINOMA
     Route: 065
     Dates: start: 20160407
  2. GEFITINIB. [Concomitant]
     Active Substance: GEFITINIB
     Indication: LUNG ADENOCARCINOMA
     Dosage: UNK UNK, UNKNOWN FREQ.
     Route: 065
     Dates: start: 20161205
  3. CARBOPLATIN. [Concomitant]
     Active Substance: CARBOPLATIN
     Dosage: 0.6 G, UNKNOWN FREQ.
     Route: 065
     Dates: start: 20160930
  4. ERLOTINIB [Suspect]
     Active Substance: ERLOTINIB
     Indication: LUNG ADENOCARCINOMA
     Dosage: 0.15 G, ONCE DAILY
     Route: 048
     Dates: start: 20150820, end: 20160329
  5. PEMETREXED. [Concomitant]
     Active Substance: PEMETREXED
     Route: 065
     Dates: start: 20160930
  6. CARBOPLATIN. [Concomitant]
     Active Substance: CARBOPLATIN
     Indication: LUNG ADENOCARCINOMA
     Dosage: 0.6 G, UNKNOWN FREQ.
     Route: 065
     Dates: start: 20160407
  7. BARACLUDE [Concomitant]
     Active Substance: ENTECAVIR
     Indication: HEPATITIS B
     Dosage: UNK, UNKNOWN FREQ.
     Route: 065
     Dates: start: 20160924

REACTIONS (8)
  - Gastrointestinal disorder [Unknown]
  - Ulcer [Unknown]
  - Rash generalised [Unknown]
  - Chest discomfort [Unknown]
  - Abdominal distension [Recovered/Resolved with Sequelae]
  - Pneumonia [Recovering/Resolving]
  - Diarrhoea [Unknown]
  - Skin exfoliation [Unknown]

NARRATIVE: CASE EVENT DATE: 201602
